FAERS Safety Report 9729080 (Version 2)
Quarter: 2013Q4

REPORT INFORMATION
  Report Type: Spontaneous
  Country: CZ (occurrence: CZ)
  Receive Date: 20131204
  Receipt Date: 20131219
  Transmission Date: 20140711
  Serious: Yes (Death)
  Sender: FDA-Public Use
  Company Number: PHHY2013CZ137845

PATIENT
  Age: 52 Year
  Sex: Male
  Weight: 125 kg

DRUGS (2)
  1. CEFAZOLIN SANDOZ [Suspect]
     Indication: ANTIBIOTIC PROPHYLAXIS
     Dosage: 1 G
     Route: 040
     Dates: start: 20131125
  2. DIPIDOLOR [Concomitant]
     Indication: PREMEDICATION
     Dosage: 1 DF
     Route: 030

REACTIONS (4)
  - Death [Fatal]
  - Circulatory collapse [Fatal]
  - Respiratory arrest [Fatal]
  - Convulsion [Fatal]
